FAERS Safety Report 9265805 (Version 1)
Quarter: 2013Q2

REPORT INFORMATION
  Report Type: Report from Study
  Country: US (occurrence: US)
  Receive Date: 20130501
  Receipt Date: 20130501
  Transmission Date: 20140414
  Serious: Yes (Hospitalization)
  Sender: FDA-Public Use
  Company Number: US-ACTELION-A-US2013-82398

PATIENT
  Age: 64 Year
  Sex: Female

DRUGS (14)
  1. TRACLEER [Suspect]
     Indication: PULMONARY ARTERIAL HYPERTENSION
     Dosage: 125 MG, UNK
     Route: 048
     Dates: start: 201102
  2. CLOPIDOGREL [Concomitant]
     Dosage: 75 MG, OD
  3. LISINOPRIL [Concomitant]
     Dosage: 20 MG, OD
  4. CRESTOR [Concomitant]
     Dosage: 40 MG, UNK
  5. ATENOLOL [Concomitant]
     Dosage: 100 MG, OD
  6. FUROSEMIDE [Concomitant]
     Dosage: 40 MG, UNK
  7. VITAMIN E [Concomitant]
     Dosage: 400 U, OD
  8. VITAMIN D [Concomitant]
     Dosage: 1000 U, UNK
  9. VITAMIN C [Concomitant]
     Dosage: 1000 MG, UNK
  10. FISH OIL [Concomitant]
     Dosage: 2 UNK, UNK
  11. CALCIUM [Concomitant]
     Dosage: 500 MG, UNK
  12. FOLIC ACID [Concomitant]
     Dosage: 1 MG, OD
  13. FLONASE [Concomitant]
     Dosage: UNK, PRN
  14. EFFEXOR [Concomitant]
     Dosage: 75 MG, TID

REACTIONS (10)
  - Haematochezia [Recovered/Resolved]
  - Blood count abnormal [Recovered/Resolved]
  - Anaemia [Recovered/Resolved]
  - Cataract [Recovered/Resolved]
  - Cataract operation [Unknown]
  - Endoscopy [Unknown]
  - Colonoscopy [Unknown]
  - Hiatus hernia [Not Recovered/Not Resolved]
  - Diverticulitis [Not Recovered/Not Resolved]
  - Transfusion [Unknown]
